FAERS Safety Report 9145572 (Version 1)
Quarter: 2013Q1

REPORT INFORMATION
  Report Type: Spontaneous
  Country: US (occurrence: None)
  Receive Date: 20130227
  Receipt Date: 20130227
  Transmission Date: 20140127
  Serious: No
  Sender: FDA-Public Use
  Company Number: None

PATIENT
  Age: 66 Year
  Sex: Male
  Weight: 93.4 kg

DRUGS (1)
  1. DEXTROSE/HEPARIN [Suspect]
     Indication: ATRIAL FIBRILLATION
     Dosage: 25000 UNITS  UD  IV
     Route: 042
     Dates: start: 20130108, end: 20130110

REACTIONS (1)
  - Heparin-induced thrombocytopenia [None]
